FAERS Safety Report 9308888 (Version 2)
Quarter: 2013Q2

REPORT INFORMATION
  Report Type: Spontaneous
  Country: US (occurrence: US)
  Receive Date: 20130524
  Receipt Date: 20130626
  Transmission Date: 20140414
  Serious: Yes (Other)
  Sender: FDA-Public Use
  Company Number: PHHY2013US051022

PATIENT
  Age: 82 Year
  Sex: Male

DRUGS (5)
  1. GABAPENTIN [Suspect]
     Indication: EPILEPSY
     Dosage: UNKNOWN DOSE
  2. GABAPENTIN [Suspect]
     Dosage: UNKNOWN DOSE INCREASED
  3. FLUOXETINE [Concomitant]
  4. AMLODIPINE [Concomitant]
  5. CARBAMAZEPINE [Concomitant]

REACTIONS (5)
  - Lichenoid keratosis [Unknown]
  - Rash maculo-papular [Not Recovered/Not Resolved]
  - Pruritus [Recovering/Resolving]
  - Hyperkeratosis [Unknown]
  - Dermatitis [Unknown]
